FAERS Safety Report 8714584 (Version 2)
Quarter: 2014Q1

REPORT INFORMATION
  Report Type: Report from Study
  Country: US (occurrence: US)
  Receive Date: 20120809
  Receipt Date: 20140319
  Transmission Date: 20141002
  Serious: Yes (Life-Threatening)
  Sender: FDA-Public Use
  Company Number: US-JNJFOC-20120801870

PATIENT
  Age: 9 Year
  Sex: Female
  Weight: 42.55 kg

DRUGS (10)
  1. REMICADE [Suspect]
     Indication: INFLAMMATORY BOWEL DISEASE
     Route: 042
     Dates: start: 20120514
  2. REMICADE [Suspect]
     Indication: INFLAMMATORY BOWEL DISEASE
     Route: 042
     Dates: start: 20120501
  3. REMICADE [Suspect]
     Indication: INFLAMMATORY BOWEL DISEASE
     Route: 042
     Dates: start: 20120605, end: 20120605
  4. ANTIBIOTICS [Concomitant]
     Indication: INFLAMMATORY BOWEL DISEASE
  5. ALLOPURINOL [Concomitant]
  6. 5ASA [Concomitant]
  7. 6-MERCAPTOPURINE [Concomitant]
  8. HYDROCORTISONE [Concomitant]
  9. PREDNISONE [Concomitant]
  10. TYLENOL [Concomitant]

REACTIONS (2)
  - Anaphylactic reaction [Recovered/Resolved]
  - Infusion related reaction [Recovered/Resolved]
